FAERS Safety Report 5730818-4 (Version None)
Quarter: 2008Q2

REPORT INFORMATION
  Report Type: 
  Country: None (occurrence: None)
  Receive Date: 20080505
  Receipt Date: 20080417
  Transmission Date: 20081010
  Serious: No
  Sender: FDA-Public Use
  Company Number: 2008SP006224

PATIENT
  Age: 41 Year
  Sex: Male
  Weight: 101.4 kg

DRUGS (3)
  1. DACARBAZINE [Suspect]
     Indication: METASTATIC MALIGNANT MELANOMA
     Dosage: 1703 MG
     Dates: start: 20070524, end: 20070524
  2. DACARBAZINE [Suspect]
     Indication: METASTATIC MALIGNANT MELANOMA
     Dosage: 1703 MG
     Dates: end: 20070824
  3. DACARBAZINE [Suspect]
     Indication: METASTATIC MALIGNANT MELANOMA
     Dosage: 1703 MG
     Dates: start: 20070328

REACTIONS (1)
  - OVERDOSE [None]
